FAERS Safety Report 9404201 (Version 1)
Quarter: 2013Q3

REPORT INFORMATION
  Report Type: Spontaneous
  Country: US (occurrence: US)
  Receive Date: 20130717
  Receipt Date: 20130717
  Transmission Date: 20140515
  Serious: No
  Sender: FDA-Public Use
  Company Number: US-BIOGENIDEC-2013BI058814

PATIENT
  Age: 34 Year
  Sex: Male

DRUGS (3)
  1. AVONEX [Suspect]
     Indication: MULTIPLE SCLEROSIS
     Route: 030
  2. AVONEX [Suspect]
     Indication: MULTIPLE SCLEROSIS
     Route: 030
     Dates: start: 20100707
  3. AVONEX [Suspect]
     Indication: MULTIPLE SCLEROSIS
     Route: 030
     Dates: start: 20130620

REACTIONS (4)
  - Lethargy [Recovered/Resolved]
  - Adverse event [Recovered/Resolved]
  - Injection site reaction [Recovered/Resolved]
  - Pyrexia [Recovered/Resolved]
